FAERS Safety Report 7523775-1 (Version None)
Quarter: 2011Q2

REPORT INFORMATION
  Report Type: 
  Country: None (occurrence: None)
  Receive Date: 20110603
  Receipt Date: 20110527
  Transmission Date: 20111010
  Serious: Yes (Hospitalization)
  Sender: FDA-Public Use
  Company Number: US-ACTELION-A-US2010-41172

PATIENT

DRUGS (2)
  1. TRACLEER [Suspect]
     Indication: PULMONARY ARTERIAL HYPERTENSION
     Dosage: 125
     Route: 048
     Dates: start: 20091103
  2. COUMADIN [Concomitant]

REACTIONS (3)
  - DEVICE RELATED INFECTION [None]
  - PNEUMONIA [None]
  - SEPSIS [None]
